FAERS Safety Report 9200068 (Version 2)
Quarter: 2013Q2

REPORT INFORMATION
  Report Type: Spontaneous
  Country: US (occurrence: US)
  Receive Date: 20130329
  Receipt Date: 20130409
  Transmission Date: 20140414
  Serious: Yes (Other)
  Sender: FDA-Public Use
  Company Number: US-JNJFOC-20130310350

PATIENT
  Age: 21 Year
  Sex: Male

DRUGS (1)
  1. TYLENOL SINUS CONGESTION AND PAIN SEVERE [Suspect]
     Indication: MULTIPLE ALLERGIES
     Route: 048
     Dates: start: 20120912

REACTIONS (2)
  - Haemoptysis [Unknown]
  - Product quality issue [Unknown]
